FAERS Safety Report 8583611-1 (Version None)
Quarter: 2012Q3

REPORT INFORMATION
  Report Type: 
  Country: None (occurrence: None)
  Receive Date: 20120809
  Receipt Date: 20110602
  Transmission Date: 20120928
  Serious: Yes (Congenital Anomaly, Other)
  Sender: FDA-Public Use
  Company Number: US-009507513-2011SP008793

PATIENT

DRUGS (9)
  1. SUBOXONE [Suspect]
     Indication: DRUG DEPENDENCE
     Dosage: 10 MG, UNK
     Route: 064
     Dates: start: 20090601, end: 20101008
  2. VALTREX [Suspect]
     Indication: HERPES VIRUS INFECTION
     Dosage: 1 G, UNK
     Route: 064
     Dates: start: 20110419
  3. RIBAVIRIN (+) INTERFERON ALFA-2B [Suspect]
     Dosage: UNK
     Route: 064
     Dates: start: 20090101, end: 20100604
  4. PEG-INTRON [Suspect]
     Dosage: UNK
     Route: 064
     Dates: start: 20090101, end: 20100604
  5. PROVENTIL [Suspect]
     Indication: ASTHMA
     Dosage: UNK, PRN
     Route: 064
  6. EFFEXOR [Suspect]
     Indication: DEPRESSION
     Dosage: 75 MG, UNK
     Route: 064
     Dates: start: 20070101, end: 20101130
  7. ZOLOFT [Suspect]
     Indication: DEPRESSION
     Dosage: 50 MG, UNK
     Route: 064
     Dates: start: 20101130
  8. SUBUTEX [Suspect]
     Indication: DRUG DEPENDENCE
     Dosage: 8 MG, UNK
     Route: 064
     Dates: start: 20101009
  9. VITAMINS (UNSPECIFIED) [Concomitant]
     Dosage: UNK
     Route: 064
     Dates: start: 20100930

REACTIONS (2)
  - VENTRICULAR SEPTAL DEFECT [None]
  - FOETAL EXPOSURE DURING PREGNANCY [None]
